FAERS Safety Report 26010320 (Version 1)
Quarter: 2025Q4

REPORT INFORMATION
  Report Type: Report from Study
  Country: SA (occurrence: SA)
  Receive Date: 20251107
  Receipt Date: 20251107
  Transmission Date: 20260118
  Serious: Yes (Other)
  Sender: EMD SERONO INC
  Company Number: SA-Merck Healthcare KGaA-2025054610

PATIENT
  Age: 12 Year
  Sex: Male

DRUGS (1)
  1. SAIZEN [Suspect]
     Active Substance: SOMATROPIN
     Indication: Growth hormone deficiency
     Dates: start: 20231217

REACTIONS (1)
  - Immunodeficiency [Unknown]

NARRATIVE: CASE EVENT DATE: 20250409
